FAERS Safety Report 12845058 (Version 1)
Quarter: 2016Q4

REPORT INFORMATION
  Report Type: Spontaneous
  Country: MY (occurrence: MY)
  Receive Date: 20161013
  Receipt Date: 20161013
  Transmission Date: 20170207
  Serious: Yes (Other)
  Sender: FDA-Public Use
  Company Number: PHHY2016MY110944

PATIENT
  Age: 5 Year
  Sex: Male

DRUGS (4)
  1. EXJADE [Suspect]
     Active Substance: DEFERASIROX
     Indication: THALASSAEMIA
     Dosage: 250 MG, QD
     Route: 065
     Dates: start: 20130717
  2. EXJADE [Suspect]
     Active Substance: DEFERASIROX
     Dosage: 375 MG, QD
     Route: 065
     Dates: start: 20160801
  3. EXJADE [Suspect]
     Active Substance: DEFERASIROX
     Dosage: 250 MG, QD
     Route: 065
  4. EXJADE [Suspect]
     Active Substance: DEFERASIROX
     Dosage: 375 MG, QD
     Route: 065

REACTIONS (11)
  - Blood phosphorus decreased [Unknown]
  - Blood magnesium decreased [Unknown]
  - Blood potassium increased [Unknown]
  - Hepatic enzyme increased [Recovering/Resolving]
  - Blood alkaline phosphatase increased [Unknown]
  - Jaundice [Unknown]
  - Blood calcium decreased [Unknown]
  - Blood bilirubin increased [Unknown]
  - Blood creatinine increased [Unknown]
  - Haemoglobin decreased [Unknown]
  - White blood cell count increased [Unknown]

NARRATIVE: CASE EVENT DATE: 20160301
